FAERS Safety Report 8985929 (Version 1)
Quarter: 2012Q4

REPORT INFORMATION
  Report Type: 
  Country: US (occurrence: US)
  Receive Date: 20121226
  Receipt Date: 20121226
  Transmission Date: 20130627
  Serious: Yes (Other)
  Sender: FDA-Public Use
  Company Number: US-PFIZER INC-2012325527

PATIENT
  Age: 91 Year
  Sex: Female
  Weight: 76.19 kg

DRUGS (4)
  1. NORVASC [Suspect]
     Indication: BLOOD PRESSURE HIGH
     Dosage: 10 mg, daily
  2. LEVOTHYROXINE [Concomitant]
     Indication: HYPOTHYROIDISM
     Dosage: 88 ug, daily
  3. TIMOLOL [Concomitant]
     Indication: GLAUCOMA
     Dosage: daily
  4. TRAVATAN [Concomitant]
     Indication: GLAUCOMA
     Dosage: UNK,daily

REACTIONS (2)
  - Fall [Unknown]
  - Foot fracture [Recovering/Resolving]
